FAERS Safety Report 8937191 (Version 1)
Quarter: 2012Q4

REPORT INFORMATION
  Report Type: Spontaneous
  Country: US (occurrence: None)
  Receive Date: 20121128
  Receipt Date: 20121128
  Transmission Date: 20130627
  Serious: Yes (Hospitalization)
  Sender: FDA-Public Use
  Company Number: None

PATIENT
  Age: 83 Year
  Sex: Female
  Weight: 106.8 kg

DRUGS (12)
  1. COUMADIN [Suspect]
     Indication: ATRIAL FIBRILLATION
     Dosage: CHRONIC
     Route: 048
  2. RYTHMOL [Suspect]
     Indication: ATRIAL FIBRILLATION
     Dosage: CHRONIC WITH RECENT INCREASE
     Route: 048
  3. SEPTRA DS [Suspect]
     Indication: CELLULITIS
  4. RAMIPRIL [Concomitant]
  5. METOPROLOL ER [Concomitant]
  6. OMEPRAZOLE [Concomitant]
  7. CHOLECALCIFEROL [Concomitant]
  8. VIT E [Concomitant]
  9. MVI [Concomitant]
  10. CRESTOR [Concomitant]
  11. TENEX [Concomitant]
  12. FLOMAX [Concomitant]

REACTIONS (9)
  - Asthenia [None]
  - Chest discomfort [None]
  - Drug interaction [None]
  - Renal failure acute [None]
  - Hypophagia [None]
  - Hyperkalaemia [None]
  - International normalised ratio increased [None]
  - Cellulitis [None]
  - Bradycardia [None]
